FAERS Safety Report 5532151-2 (Version None)
Quarter: 2007Q4

REPORT INFORMATION
  Report Type: 
  Country: None (occurrence: None)
  Receive Date: 20071128
  Receipt Date: 20071112
  Transmission Date: 20080405
  Serious: Yes (Life-Threatening)
  Sender: FDA-Public Use
  Company Number: S07-UKI-06071-02

PATIENT
  Sex: Female

DRUGS (5)
  1. CITALOPRAM HYDROBROMIDE [Suspect]
  2. SUXAMETHONIUM [Suspect]
     Dates: start: 20070930, end: 20070930
  3. ACTURIUM [Suspect]
     Dates: start: 20070930, end: 20070930
  4. MORPHINE [Suspect]
     Dates: start: 20070930, end: 20070930
  5. THIOPENTONE [Suspect]
     Dates: start: 20070930, end: 20070930

REACTIONS (2)
  - DRUG EXPOSURE DURING PREGNANCY [None]
  - NEONATAL RESPIRATORY DEPRESSION [None]
